FAERS Safety Report 23707688 (Version 1)
Quarter: 2024Q2

REPORT INFORMATION
  Report Type: Spontaneous
  Country: IT (occurrence: IT)
  Receive Date: 20240404
  Receipt Date: 20240404
  Transmission Date: 20240716
  Serious: Yes (Other)
  Sender: FDA-Public Use
  Company Number: IT-OMNIVISION-IT-ADR001-2023

PATIENT
  Age: 68 Year
  Sex: Female

DRUGS (3)
  1. BRIMONIDINE [Suspect]
     Active Substance: BRIMONIDINE TARTRATE
     Indication: Intraocular pressure test
     Dosage: DOSE DESC: 1 DROP
     Route: 065
  2. TIMOLOL [Suspect]
     Active Substance: TIMOLOL
     Indication: Exfoliation glaucoma
     Dosage: 2DROP,
     Route: 065
  3. TRAVATAN [Concomitant]
     Active Substance: TRAVOPROST
     Indication: Exfoliation glaucoma
     Dosage: COLLIRIO, DOSE DESC: 1 DROP IN THE EVENING IN BOTH EYES
     Route: 065
     Dates: start: 2019

REACTIONS (5)
  - Ocular hypertension [Unknown]
  - Product substitution [Unknown]
  - Conjunctival hyperaemia [Unknown]
  - Eyelid oedema [Unknown]
  - Drug intolerance [Unknown]
